FAERS Safety Report 22129015 (Version 3)
Quarter: 2023Q2

REPORT INFORMATION
  Report Type: Spontaneous
  Country: US (occurrence: US)
  Receive Date: 20230323
  Receipt Date: 20230515
  Transmission Date: 20230721
  Serious: No
  Sender: FDA-Public Use
  Company Number: US-GSK-US2023AMR039699

PATIENT
  Sex: Female
  Weight: 21.392 kg

DRUGS (1)
  1. NUCALA [Suspect]
     Active Substance: MEPOLIZUMAB
     Indication: Product used for unknown indication
     Dosage: 100 MG, Q4W
     Route: 058
     Dates: start: 202208

REACTIONS (3)
  - Herpes zoster [Recovered/Resolved]
  - Somnolence [Recovered/Resolved]
  - Pain [Unknown]
